FAERS Safety Report 17255751 (Version 2)
Quarter: 2020Q1

REPORT INFORMATION
  Report Type: Spontaneous
  Country: IT (occurrence: IT)
  Receive Date: 20200110
  Receipt Date: 20200327
  Transmission Date: 20200409
  Serious: Yes (Other)
  Sender: FDA-Public Use
  Company Number: IT-ASTRAZENECA-2020SE03251

PATIENT
  Age: 57 Year
  Sex: Female

DRUGS (4)
  1. FASENRA [Suspect]
     Active Substance: BENRALIZUMAB
     Dosage: 30.0MG ONCE/SINGLE ADMINISTRATION
     Route: 058
     Dates: start: 20191230
  2. EKLIRA GENUAIR [Concomitant]
     Active Substance: ACLIDINIUM BROMIDE
     Indication: BRONCHOSPASM
  3. FOSTER [Concomitant]
     Active Substance: BECLOMETHASONE\FORMOTEROL
     Indication: ASTHMA
  4. BENTELAN [Concomitant]
     Active Substance: BETAMETHASONE SODIUM PHOSPHATE

REACTIONS (6)
  - Abdominal pain [Recovered/Resolved]
  - Nystagmus [Recovered/Resolved]
  - Bradyphrenia [Recovered/Resolved]
  - Hypotension [Recovered/Resolved]
  - Hypokinesia [Recovered/Resolved]
  - Loss of consciousness [Recovered/Resolved]

NARRATIVE: CASE EVENT DATE: 20191230
